FAERS Safety Report 4758189-0 (Version None)
Quarter: 2005Q3

REPORT INFORMATION
  Report Type: 
  Country: None (occurrence: None)
  Receive Date: 20050829
  Receipt Date: 20050819
  Transmission Date: 20060218
  Serious: Yes (Death, Life-Threatening, Hospitalization)
  Sender: FDA-Public Use
  Company Number: 2005-02-0185

PATIENT
  Age: 24 Year
  Sex: Female
  Weight: 70 kg

DRUGS (7)
  1. TEMODAL [Suspect]
     Indication: ASTROCYTOMA
     Dosage: 340 MG QS ORAL
     Route: 048
     Dates: start: 20050111, end: 20050115
  2. TEMODAL [Suspect]
     Indication: ASTROCYTOMA
     Dosage: ORAL
     Route: 048
  3. TEMODAL [Suspect]
     Indication: ASTROCYTOMA
     Dosage: 200 MG/M^2 ORAL
     Route: 048
     Dates: start: 20050521, end: 20050525
  4. PANTOZOL (PANTOPRAZOLE) TABLETS [Concomitant]
  5. VM 26 100.8 MG QD [Concomitant]
  6. VM-26 [Concomitant]
  7. VM 26 60 MG/M^2 [Concomitant]

REACTIONS (12)
  - BRAIN OEDEMA [None]
  - CONVULSION [None]
  - DEPRESSED LEVEL OF CONSCIOUSNESS [None]
  - EXTENSOR PLANTAR RESPONSE [None]
  - GAZE PALSY [None]
  - MYDRIASIS [None]
  - NEOPLASM PROGRESSION [None]
  - PETECHIAE [None]
  - SEPSIS [None]
  - SOPOR [None]
  - SUBDURAL HAEMATOMA [None]
  - THROMBOCYTOPENIA [None]
